FAERS Safety Report 25892636 (Version 2)
Quarter: 2025Q4

REPORT INFORMATION
  Report Type: Spontaneous
  Country: CN (occurrence: CN)
  Receive Date: 20251007
  Receipt Date: 20251028
  Transmission Date: 20260118
  Serious: No
  Sender: NOVO NORDISK
  Company Number: CN-NOVOPROD-1535381

PATIENT
  Age: 37 Year
  Sex: Female
  Weight: 60 kg

DRUGS (3)
  1. WEGOVY [Suspect]
     Active Substance: SEMAGLUTIDE
     Indication: Weight control
     Dosage: 1 MG
  2. WEGOVY [Suspect]
     Active Substance: SEMAGLUTIDE
     Indication: Weight control
     Dosage: 0.5 MG
  3. WEGOVY [Suspect]
     Active Substance: SEMAGLUTIDE
     Indication: Weight control
     Dosage: 0.25 MG
     Dates: start: 202503

REACTIONS (4)
  - Visual impairment [Unknown]
  - Cold sweat [Unknown]
  - Dizziness [Unknown]
  - Injection site pain [Recovered/Resolved]
